FAERS Safety Report 7734555-6 (Version None)
Quarter: 2011Q3

REPORT INFORMATION
  Report Type: 
  Country: None (occurrence: None)
  Receive Date: 20110907
  Receipt Date: 20110831
  Transmission Date: 20111222
  Serious: Yes (Other)
  Sender: FDA-Public Use
  Company Number: JP-GLAXOSMITHKLINE-B0744076A

PATIENT
  Sex: Male

DRUGS (2)
  1. VALPROATE SODIUM [Concomitant]
     Dosage: 3IUAX PER DAY
     Route: 065
  2. ZOVIRAX [Suspect]
     Indication: MENINGITIS
     Dosage: 1500MG PER DAY
     Route: 042

REACTIONS (1)
  - ENCEPHALOPATHY [None]
